FAERS Safety Report 10896268 (Version 1)
Quarter: 2015Q1

REPORT INFORMATION
  Report Type: Spontaneous
  Country: US (occurrence: None)
  Receive Date: 20150302
  Receipt Date: 20150302
  Transmission Date: 20150721
  Serious: No
  Sender: FDA-Public Use
  Company Number: None

PATIENT
  Age: 41 Year
  Sex: Female

DRUGS (1)
  1. REMICADE [Suspect]
     Active Substance: INFLIXIMAB
     Indication: COLITIS ULCERATIVE
     Dosage: STRENGTH: 100, DOSE FORM: Q8WEEKS, ROUTE: INTRAVENOUS (NOT OTHERWISE SPECIFIED) 042, FREQUENCY: Q8WEEKS
     Route: 042
     Dates: start: 20140413, end: 20150211

REACTIONS (2)
  - Drug ineffective [None]
  - Condition aggravated [None]

NARRATIVE: CASE EVENT DATE: 20150227
